FAERS Safety Report 24638851 (Version 2)
Quarter: 2024Q4

REPORT INFORMATION
  Report Type: Report from Study
  Country: US (occurrence: US)
  Receive Date: 20241119
  Receipt Date: 20241204
  Transmission Date: 20250115
  Serious: No
  Sender: SANOFI AVENTIS
  Company Number: US-SA-SAC20240627000951

PATIENT
  Age: 1 Year
  Sex: Female

DRUGS (2)
  1. DUPILUMAB [Suspect]
     Active Substance: DUPILUMAB
     Indication: Eczema
     Dosage: 200 MG, Q4W
     Route: 058
     Dates: start: 20240509
  2. DUPILUMAB [Suspect]
     Active Substance: DUPILUMAB
     Indication: Dermatitis atopic

REACTIONS (9)
  - Restlessness [Unknown]
  - Injection site pruritus [Unknown]
  - Injection site rash [Unknown]
  - Needle issue [Unknown]
  - Cough [Not Recovered/Not Resolved]
  - Rhinorrhoea [Not Recovered/Not Resolved]
  - Rash pruritic [Not Recovered/Not Resolved]
  - Pyrexia [Not Recovered/Not Resolved]
  - Hand-foot-and-mouth disease [Not Recovered/Not Resolved]

NARRATIVE: CASE EVENT DATE: 20240101
